FAERS Safety Report 4619213-9 (Version None)
Quarter: 2005Q2

REPORT INFORMATION
  Report Type: 
  Country: None (occurrence: None)
  Receive Date: 20050321
  Receipt Date: 20040902
  Transmission Date: 20051028
  Serious: Yes (Other)
  Sender: FDA-Public Use
  Company Number: 2004-09-0257

PATIENT
  Age: 64 Year
  Sex: Female
  Weight: 106.5953 kg

DRUGS (5)
  1. PEG-INTRON [Suspect]
     Indication: HEPATITIS C
     Dosage: 150 MCG QWK SUBCUTANEOUS;  112 MCG QWK SUBCUTANEOUS
     Route: 058
     Dates: start: 20011031, end: 20020411
  2. PEG-INTRON [Suspect]
     Indication: HEPATITIS C
     Dosage: 150 MCG QWK SUBCUTANEOUS;  112 MCG QWK SUBCUTANEOUS
     Route: 058
     Dates: start: 20020412, end: 20021025
  3. REBETOL [Suspect]
     Indication: HEPATITIS C
     Dosage: 1200 MG QD ORAL;  1000 MG QD ORAL;  800 MG QD ORAL
     Route: 048
     Dates: start: 20011030, end: 20020606
  4. REBETOL [Suspect]
     Indication: HEPATITIS C
     Dosage: 1200 MG QD ORAL;  1000 MG QD ORAL;  800 MG QD ORAL
     Route: 048
     Dates: end: 20021025
  5. REBETOL [Suspect]
     Indication: HEPATITIS C
     Dosage: 1200 MG QD ORAL;  1000 MG QD ORAL;  800 MG QD ORAL
     Route: 048
     Dates: start: 20020607

REACTIONS (5)
  - DECREASED APPETITE [None]
  - DIABETES MELLITUS [None]
  - FATIGUE [None]
  - HYPOTRICHOSIS [None]
  - MOOD SWINGS [None]
